FAERS Safety Report 5584086-7 (Version None)
Quarter: 2008Q1

REPORT INFORMATION
  Report Type: 
  Country: None (occurrence: None)
  Receive Date: 20080108
  Receipt Date: 20071227
  Transmission Date: 20080703
  Serious: Yes (Hospitalization)
  Sender: FDA-Public Use
  Company Number: US-AMGEN-QUU258327

PATIENT
  Sex: Female

DRUGS (2)
  1. ENBREL [Suspect]
     Indication: RHEUMATOID ARTHRITIS
     Route: 058
     Dates: start: 20021227
  2. METHOTREXATE [Concomitant]

REACTIONS (4)
  - CONDITION AGGRAVATED [None]
  - ECONOMIC PROBLEM [None]
  - RHEUMATOID ARTHRITIS [None]
  - TREATMENT NONCOMPLIANCE [None]
